FAERS Safety Report 17671813 (Version 9)
Quarter: 2023Q1

REPORT INFORMATION
  Report Type: Report from Study
  Country: JP (occurrence: JP)
  Receive Date: 20200415
  Receipt Date: 20230216
  Transmission Date: 20230417
  Serious: Yes (Hospitalization, Other)
  Sender: FDA-Public Use
  Company Number: JP-ONO-2020JP009134

PATIENT
  Age: 79 Year
  Sex: Female
  Weight: 33.1 kg

DRUGS (30)
  1. ETELCALCETIDE [Suspect]
     Active Substance: ETELCALCETIDE
     Indication: Hyperparathyroidism secondary
     Dosage: 5 MILLIGRAM, Q56H
     Route: 010
     Dates: start: 20190327, end: 20190913
  2. ETELCALCETIDE [Suspect]
     Active Substance: ETELCALCETIDE
     Dosage: 2.5 MILLIGRAM, Q56H
     Route: 010
     Dates: start: 20190916
  3. COVID-19 VACCINE NOS [Suspect]
     Active Substance: COVID-19 VACCINE NOS
     Indication: Product used for unknown indication
     Dosage: UNK
     Route: 065
  4. DARBEPOETIN ALFA [Concomitant]
     Active Substance: DARBEPOETIN ALFA
     Dosage: 5 MICROGRAM, QWK
     Route: 042
     Dates: end: 20190405
  5. DARBEPOETIN ALFA [Concomitant]
     Active Substance: DARBEPOETIN ALFA
     Dosage: 10 MICROGRAM, QWK
     Route: 042
     Dates: start: 20190412, end: 20190607
  6. DARBEPOETIN ALFA [Concomitant]
     Active Substance: DARBEPOETIN ALFA
     Dosage: 40 MICROGRAM, QWK
     Route: 042
     Dates: start: 20190614, end: 20190809
  7. DARBEPOETIN ALFA [Concomitant]
     Active Substance: DARBEPOETIN ALFA
     Dosage: 40 MICROGRAM, QW
     Route: 042
     Dates: start: 20190816, end: 20200117
  8. DARBEPOETIN ALFA [Concomitant]
     Active Substance: DARBEPOETIN ALFA
     Dosage: 30 MICROGRAM, QW
     Route: 042
     Dates: start: 20200124, end: 20200131
  9. DARBEPOETIN ALFA [Concomitant]
     Active Substance: DARBEPOETIN ALFA
     Dosage: 15 MICROGRAM, QW
     Route: 042
     Dates: start: 20200207, end: 20200925
  10. DARBEPOETIN ALFA [Concomitant]
     Active Substance: DARBEPOETIN ALFA
     Dosage: 10 MICROGRAM, QW
     Route: 042
     Dates: start: 20201002, end: 20201002
  11. DARBEPOETIN ALFA [Concomitant]
     Active Substance: DARBEPOETIN ALFA
     Dosage: 5 MICROGRAM, QW
     Route: 042
     Dates: start: 20201009, end: 20210101
  12. DARBEPOETIN ALFA [Concomitant]
     Active Substance: DARBEPOETIN ALFA
     Dosage: 10 MICROGRAM, QW
     Route: 042
     Dates: start: 20210108, end: 20210129
  13. DARBEPOETIN ALFA [Concomitant]
     Active Substance: DARBEPOETIN ALFA
     Dosage: 20 MICROGRAM, QW
     Route: 042
     Dates: start: 20210205, end: 20210820
  14. DARBEPOETIN ALFA [Concomitant]
     Active Substance: DARBEPOETIN ALFA
     Dosage: 30 MICROGRAM, QW
     Route: 042
     Dates: start: 20210827, end: 20211015
  15. DARBEPOETIN ALFA [Concomitant]
     Active Substance: DARBEPOETIN ALFA
     Dosage: 40 MICROGRAM, QW
     Route: 042
     Dates: start: 20211022, end: 20220415
  16. OXAROL [Concomitant]
     Active Substance: MAXACALCITOL
     Dosage: 2.5 MICROGRAM, Q56H
     Route: 042
     Dates: end: 20180912
  17. OXAROL [Concomitant]
     Active Substance: MAXACALCITOL
     Dosage: 5 MICROGRAM, Q56H
     Route: 042
     Dates: start: 20180914, end: 20190610
  18. OXAROL [Concomitant]
     Active Substance: MAXACALCITOL
     Dosage: 2.5 MICROGRAM, Q56H
     Dates: start: 20190612, end: 20190724
  19. OXAROL [Concomitant]
     Active Substance: MAXACALCITOL
     Dosage: 5 MICROGRAM, Q56H
     Route: 042
     Dates: start: 20190726, end: 20200205
  20. OXAROL [Concomitant]
     Active Substance: MAXACALCITOL
     Dosage: 5.0 MICROGRAM, Q56H
     Route: 042
     Dates: start: 20201211, end: 20210407
  21. MAXACALCITOL [Concomitant]
     Active Substance: MAXACALCITOL
     Dosage: 2.5 MICROGRAM, Q56H
     Route: 042
     Dates: start: 20200207, end: 20201209
  22. MAXACALCITOL [Concomitant]
     Active Substance: MAXACALCITOL
     Dosage: 2.5 MICROGRAM, Q56H
     Route: 042
     Dates: start: 20210409, end: 20210712
  23. MAXACALCITOL [Concomitant]
     Active Substance: MAXACALCITOL
     Dosage: 5 MICROGRAM, Q56H
     Route: 042
     Dates: start: 20210714, end: 20210908
  24. MAXACALCITOL [Concomitant]
     Active Substance: MAXACALCITOL
     Dosage: 2.5 MICROGRAM, Q56H
     Route: 042
     Dates: start: 20210910, end: 20220314
  25. MAXACALCITOL [Concomitant]
     Active Substance: MAXACALCITOL
     Dosage: 5 MICROGRAM, Q56H
     Route: 040
     Dates: start: 20220316, end: 20220722
  26. MAXACALCITOL [Concomitant]
     Active Substance: MAXACALCITOL
     Dosage: 2.5 MICROGRAM, Q56H
     Route: 040
     Dates: start: 20220725
  27. Fesin [Concomitant]
     Dosage: 40 MILLIGRAM, QWK
     Route: 041
  28. SUCROFERRIC OXYHYDROXIDE [Concomitant]
     Active Substance: SUCROFERRIC OXYHYDROXIDE
     Dosage: 750 MILLIGRAM, QD
     Route: 048
     Dates: end: 20181011
  29. SUCROFERRIC OXYHYDROXIDE [Concomitant]
     Active Substance: SUCROFERRIC OXYHYDROXIDE
     Dosage: 500 MILLIGRAM, QD
     Route: 048
     Dates: start: 20181012, end: 20210524
  30. FOSRENOL [Concomitant]
     Active Substance: LANTHANUM CARBONATE
     Dosage: 500 MG, EVERYDAY
     Route: 048
     Dates: start: 20201209, end: 20220519

REACTIONS (6)
  - Spinal compression fracture [Recovered/Resolved]
  - Transient ischaemic attack [Recovered/Resolved]
  - Enterocolitis [Recovered/Resolved]
  - Pyrexia [Recovered/Resolved]
  - Osteoarthritis [Recovering/Resolving]
  - Fall [Unknown]

NARRATIVE: CASE EVENT DATE: 20190607
